FAERS Safety Report 7046742-3 (Version None)
Quarter: 2010Q4

REPORT INFORMATION
  Report Type: 
  Country: None (occurrence: None)
  Receive Date: 20101015
  Receipt Date: 20101006
  Transmission Date: 20110411
  Serious: Yes (Other)
  Sender: FDA-Public Use
  Company Number: US-JNJFOC-20101002499

PATIENT
  Sex: Female

DRUGS (2)
  1. RISPERDAL [Suspect]
     Indication: SCHIZOPHRENIA
     Dosage: DAILY
     Route: 048
  2. INVEGA SUSTENNA [Suspect]
     Indication: SCHIZOPHRENIA
     Route: 030

REACTIONS (7)
  - DISTURBANCE IN SOCIAL BEHAVIOUR [None]
  - FOOD INTOLERANCE [None]
  - HYPERSOMNIA [None]
  - MANIA [None]
  - SCHIZOPHRENIA [None]
  - SOMNOLENCE [None]
  - WEIGHT INCREASED [None]
